FAERS Safety Report 4832668-X (Version None)
Quarter: 2005Q4

REPORT INFORMATION
  Report Type: 
  Country: None (occurrence: None)
  Receive Date: 20051117
  Receipt Date: 20051109
  Transmission Date: 20060501
  Serious: Yes (Other)
  Sender: FDA-Public Use
  Company Number: 2005-10-1100

PATIENT
  Sex: Female

DRUGS (12)
  1. CLARINEX [Suspect]
     Dosage: 5 MG QD
     Dates: start: 20010101
  2. NASONEX [Suspect]
     Dosage: PRN NASAL SPRAY
  3. PROVENTIL-HFA [Suspect]
     Dosage: 2PUF Q4H/PRN
  4. TRILEPTAL [Concomitant]
  5. SYNTHROID [Concomitant]
  6. LIBRAX [Concomitant]
  7. ACIPHEX [Concomitant]
  8. LIPITOR [Concomitant]
  9. SINGULAIR [Concomitant]
  10. ATROVENT [Concomitant]
  11. MINOCYCLINE [Concomitant]
  12. ELMIRON [Concomitant]

REACTIONS (2)
  - CONVULSION [None]
  - DRUG INTERACTION [None]
